FAERS Safety Report 8292874 (Version 3)
Quarter: 2015Q4

REPORT INFORMATION
  Report Type: Spontaneous
  Country: GB (occurrence: GB)
  Receive Date: 20111215
  Receipt Date: 20151211
  Transmission Date: 20160305
  Serious: Yes (Death, Other)
  Sender: FDA-Public Use
  Company Number: GB-GLAXOSMITHKLINE-B0767657A

PATIENT
  Age: 64 Year
  Sex: Female

DRUGS (6)
  1. LAMICTAL [Suspect]
     Active Substance: LAMOTRIGINE
     Dosage: 150 MG, BID
     Route: 048
     Dates: start: 20110201
  2. LAMICTAL [Suspect]
     Active Substance: LAMOTRIGINE
     Dosage: 100 MG
  3. LAMICTAL [Suspect]
     Active Substance: LAMOTRIGINE
     Indication: EPILEPSY
     Dosage: UNK
     Route: 048
     Dates: start: 20070509
  4. TROBALT [Suspect]
     Active Substance: EZOGABINE
     Indication: EPILEPSY
     Dosage: DOSE TITRATED UP FROM 50 MG THREE TIMES PER DAY TO 100 MG THREE TIMES PER DAY.
     Route: 048
     Dates: start: 20111107
  5. ZEBINIX [Suspect]
     Active Substance: ESLICARBAZEPINE ACETATE
     Indication: PRODUCT USED FOR UNKNOWN INDICATION
     Dosage: 1.2 G, 1D
     Route: 065
     Dates: start: 2010
  6. ZEBINIX [Suspect]
     Active Substance: ESLICARBAZEPINE ACETATE
     Dosage: 800 MG, 1D

REACTIONS (2)
  - Status epilepticus [Fatal]
  - Drug dose omission [Unknown]

NARRATIVE: CASE EVENT DATE: 20111124
